FAERS Safety Report 4608879-5 (Version None)
Quarter: 2005Q1

REPORT INFORMATION
  Report Type: 
  Country: None (occurrence: None)
  Receive Date: 20050311
  Receipt Date: 20050301
  Transmission Date: 20050727
  Serious: Yes (Hospitalization)
  Sender: FDA-Public Use
  Company Number: 2005039207

PATIENT
  Age: 59 Year
  Sex: Female

DRUGS (5)
  1. LIPITOR [Suspect]
     Indication: BLOOD CHOLESTEROL INCREASED
     Dosage: (1 IN 1 D), ORAL
     Route: 048
     Dates: start: 20050205
  2. LIPITOR [Suspect]
     Indication: LOW DENSITY LIPOPROTEIN INCREASED
     Dosage: (1 IN 1 D), ORAL
     Route: 048
     Dates: start: 20050205
  3. PHENOBARBITAL TAB [Concomitant]
  4. ASPIRIN [Concomitant]
  5. CLOPIDOGREL BISULFATE [Concomitant]

REACTIONS (5)
  - CEREBROVASCULAR ACCIDENT [None]
  - CONVULSION [None]
  - HYPOKINESIA [None]
  - INTRACRANIAL PRESSURE INCREASED [None]
  - SPEECH DISORDER [None]
